FAERS Safety Report 26013379 (Version 1)
Quarter: 2025Q4

REPORT INFORMATION
  Report Type: Spontaneous
  Country: BR (occurrence: BR)
  Receive Date: 20251107
  Receipt Date: 20251107
  Transmission Date: 20260118
  Serious: Yes (Hospitalization, Other)
  Sender: NOVARTIS
  Company Number: BR-002147023-NVSC2025BR130318

PATIENT

DRUGS (1)
  1. IMATINIB [Suspect]
     Active Substance: IMATINIB
     Indication: Product used for unknown indication
     Dosage: UNK
     Route: 065

REACTIONS (5)
  - Cardiotoxicity [Unknown]
  - Meningitis [Unknown]
  - Leukopenia [Not Recovered/Not Resolved]
  - Thrombocytopenia [Unknown]
  - Cytogenetic analysis abnormal [Unknown]
